FAERS Safety Report 5046132-9 (Version None)
Quarter: 2006Q3

REPORT INFORMATION
  Report Type: 
  Country: None (occurrence: None)
  Receive Date: 20060707
  Receipt Date: 20060707
  Transmission Date: 20061208
  Serious: Yes (Hospitalization)
  Sender: FDA-Public Use
  Company Number: None

PATIENT
  Age: 70 Year
  Sex: Male
  Weight: 77.1115 kg

DRUGS (1)
  1. ZOCOR [Suspect]
     Indication: BLOOD CHOLESTEROL INCREASED
     Dosage: 20MG  1XDAILY   PO
     Route: 048
     Dates: start: 20021101, end: 20060110

REACTIONS (2)
  - MUSCULAR WEAKNESS [None]
  - RENAL FAILURE [None]
